FAERS Safety Report 6188010-8 (Version None)
Quarter: 2009Q2

REPORT INFORMATION
  Report Type: 
  Country: None (occurrence: None)
  Receive Date: 20090513
  Receipt Date: 20090505
  Transmission Date: 20091009
  Serious: Yes (Hospitalization, Other)
  Sender: FDA-Public Use
  Company Number: ES-BAYER-200920170GPV

PATIENT
  Age: 49 Year
  Sex: Female

DRUGS (1)
  1. ACTIRA [Suspect]
     Indication: INFECTION
     Route: 065
     Dates: start: 20090101, end: 20090101

REACTIONS (4)
  - CSF PROTEIN INCREASED [None]
  - HEADACHE [None]
  - PARAESTHESIA [None]
  - PRURITUS [None]
